FAERS Safety Report 7660194-1 (Version None)
Quarter: 2011Q3

REPORT INFORMATION
  Report Type: 
  Country: None (occurrence: None)
  Receive Date: 20110805
  Receipt Date: 20110727
  Transmission Date: 20111222
  Serious: Yes (Other)
  Sender: FDA-Public Use
  Company Number: PHHY2011US68623

PATIENT
  Sex: Female

DRUGS (2)
  1. FAMPRIDINE [Suspect]
     Dosage: UNK
     Dates: end: 20110501
  2. GILENYA [Suspect]
     Indication: MULTIPLE SCLEROSIS
     Dosage: 0.5 MG, QD
     Route: 048
     Dates: start: 20101201, end: 20110501

REACTIONS (2)
  - TREMOR [None]
  - CONVULSION [None]
